FAERS Safety Report 4765981-5 (Version None)
Quarter: 2005Q3

REPORT INFORMATION
  Report Type: 
  Country: None (occurrence: None)
  Receive Date: 20050908
  Receipt Date: 20050824
  Transmission Date: 20060218
  Serious: Yes (Other)
  Sender: FDA-Public Use
  Company Number: 2005-128477-NL

PATIENT
  Age: 37 Year
  Sex: Female
  Weight: 59.1 kg

DRUGS (3)
  1. NUVARING [Suspect]
     Indication: CONTRACEPTION
     Dosage: VAGINAL
     Route: 067
     Dates: start: 20040501, end: 20050601
  2. LACI LE BEAU [Concomitant]
  3. VALERIAN [Concomitant]

REACTIONS (10)
  - DIZZINESS [None]
  - DRUG INEFFECTIVE [None]
  - ENDOCRINE DISORDER [None]
  - IMPAIRED DRIVING ABILITY [None]
  - IMPAIRED WORK ABILITY [None]
  - LOSS OF CONSCIOUSNESS [None]
  - SYNCOPE VASOVAGAL [None]
  - TREATMENT NONCOMPLIANCE [None]
  - VERTIGO [None]
  - VISUAL DISTURBANCE [None]
